FAERS Safety Report 24785566 (Version 1)
Quarter: 2024Q4

REPORT INFORMATION
  Report Type: Spontaneous
  Country: US (occurrence: None)
  Receive Date: 20241227
  Receipt Date: 20241227
  Transmission Date: 20250115
  Serious: Yes (Disabling, Other)
  Sender: Public
  Company Number: None

PATIENT
  Age: 73 Year
  Sex: Male

DRUGS (2)
  1. RECLAST [Suspect]
     Active Substance: ZOLEDRONIC ACID
     Dates: start: 20241216, end: 20241216
  2. NORCO [Suspect]
     Active Substance: ACETAMINOPHEN\HYDROCODONE BITARTRATE

REACTIONS (9)
  - Pain in extremity [None]
  - Peripheral swelling [None]
  - Arthralgia [None]
  - Joint swelling [None]
  - Grip strength decreased [None]
  - Pain [None]
  - Pyrexia [None]
  - Chills [None]
  - Eye haemorrhage [None]

NARRATIVE: CASE EVENT DATE: 20241216
